FAERS Safety Report 10152478 (Version 3)
Quarter: 2014Q2

REPORT INFORMATION
  Report Type: Spontaneous
  Country: AU (occurrence: AU)
  Receive Date: 20140505
  Receipt Date: 20140505
  Transmission Date: 20141212
  Serious: Yes (Hospitalization, Other)
  Sender: FDA-Public Use
  Company Number: AU-PFIZER INC-2014095550

PATIENT
  Age: 33 Year
  Sex: Female
  Weight: 120 kg

DRUGS (2)
  1. DEPO-MEDROL [Suspect]
     Dosage: UNK
  2. DIABEX XR [Concomitant]
     Indication: TYPE 2 DIABETES MELLITUS
     Dosage: 1000 MG, 2X/DAY
     Dates: start: 2007

REACTIONS (8)
  - Hypersensitivity [Recovered/Resolved]
  - Palpitations [Recovered/Resolved]
  - Peripheral swelling [Unknown]
  - Burning sensation [Recovered/Resolved]
  - Dyspnoea [Recovered/Resolved]
  - Swollen tongue [Recovered/Resolved]
  - Injection site pain [Recovered/Resolved]
  - Pharyngeal oedema [Recovered/Resolved]
